FAERS Safety Report 9115346 (Version 2)
Quarter: 2013Q2

REPORT INFORMATION
  Report Type: Spontaneous
  Country: US (occurrence: None)
  Receive Date: 20130129
  Receipt Date: 20130617
  Transmission Date: 20140414
  Serious: Yes (Death, Life-Threatening, Hospitalization, Other)
  Sender: FDA-Public Use
  Company Number: 144391

PATIENT
  Age: 50 Year
  Sex: Male
  Weight: 61 kg

DRUGS (1)
  1. LEUCOVORIN [Suspect]
     Indication: COLON CANCER
     Dosage: 696MG/BODY
     Dates: start: 20120731, end: 20130130

REACTIONS (4)
  - Pulmonary fibrosis [None]
  - Blood pressure decreased [None]
  - Interstitial lung disease [None]
  - Respiratory failure [None]
